FAERS Safety Report 16698593 (Version 1)
Quarter: 2019Q3

REPORT INFORMATION
  Report Type: Spontaneous
  Country: US (occurrence: US)
  Receive Date: 20190627
  Receipt Date: 20190627
  Transmission Date: 20191004
  Serious: No
  Sender: FDA-Public Use
  Company Number: None

PATIENT
  Age: 50 Year
  Sex: Female

DRUGS (1)
  1. LETROZOLE TAB 2.5MG [Suspect]
     Active Substance: LETROZOLE
     Route: 048
     Dates: start: 20190330

REACTIONS (7)
  - Limb discomfort [None]
  - Paraesthesia [None]
  - Arthralgia [None]
  - Pruritus [None]
  - Hot flush [None]
  - Hyperhidrosis [None]
  - Pain in extremity [None]

NARRATIVE: CASE EVENT DATE: 20190627
